FAERS Safety Report 14648451 (Version 1)
Quarter: 2018Q1

REPORT INFORMATION
  Report Type: Spontaneous
  Country: US (occurrence: US)
  Receive Date: 20180316
  Receipt Date: 20180316
  Transmission Date: 20180509
  Serious: No
  Sender: FDA-Public Use
  Company Number: US-PERRIGO-18US000736

PATIENT
  Age: 2 Year
  Sex: Male

DRUGS (1)
  1. LORATADINE AND PSEUDOEPHEDRINE SULFATE [Suspect]
     Active Substance: LORATADINE\PSEUDOEPHEDRINE SULFATE
     Indication: ACCIDENTAL EXPOSURE TO PRODUCT
     Dosage: 1 TABLET, SINGLE
     Route: 048
     Dates: start: 20180123, end: 20180123

REACTIONS (1)
  - Accidental exposure to product [Recovered/Resolved]

NARRATIVE: CASE EVENT DATE: 20180123
